FAERS Safety Report 4993605-0 (Version None)
Quarter: 2006Q2

REPORT INFORMATION
  Report Type: 
  Country: None (occurrence: None)
  Receive Date: 20060505
  Receipt Date: 20060427
  Transmission Date: 20061013
  Serious: Yes (Other)
  Sender: FDA-Public Use
  Company Number: US-JNJFOC-20060406154

PATIENT

DRUGS (28)
  1. REMICADE [Suspect]
     Route: 042
  2. REMICADE [Suspect]
     Route: 042
  3. REMICADE [Suspect]
     Route: 042
  4. REMICADE [Suspect]
     Indication: RHEUMATOID ARTHRITIS
     Dosage: 24 DOSES
     Route: 042
  5. METHOTREXATE [Concomitant]
  6. FOLATE [Concomitant]
  7. METHYLPREDNISOLONE 4MG TAB [Concomitant]
     Dosage: DOSE .25CC
  8. VICODIN [Concomitant]
  9. VICODIN [Concomitant]
  10. SYNTHROID [Concomitant]
  11. FOSAMAX [Concomitant]
  12. LORAZEPAM [Concomitant]
     Dosage: AT HS
  13. COUMADIN [Concomitant]
  14. DILANTIN [Concomitant]
  15. AMBIEN [Concomitant]
  16. ZESTRIL [Concomitant]
  17. PAXIL [Concomitant]
  18. PRILOSEC [Concomitant]
  19. VITAMIN D [Concomitant]
  20. CALCIUM GLUCONATE [Concomitant]
  21. MULTIVITAMIN [Concomitant]
  22. MULTIVITAMIN [Concomitant]
  23. MULTIVITAMIN [Concomitant]
  24. MULTIVITAMIN [Concomitant]
  25. MULTIVITAMIN [Concomitant]
  26. MULTIVITAMIN [Concomitant]
  27. MULTIVITAMIN [Concomitant]
  28. MULTIVITAMIN [Concomitant]

REACTIONS (1)
  - ADENOCARCINOMA [None]
